FAERS Safety Report 4712274-8 (Version None)
Quarter: 2005Q3

REPORT INFORMATION
  Report Type: 
  Country: None (occurrence: None)
  Receive Date: 20050712
  Receipt Date: 20050706
  Transmission Date: 20060218
  Serious: Yes (Hospitalization)
  Sender: FDA-Public Use
  Company Number: US-GLAXOSMITHKLINE-B0387331A

PATIENT
  Age: 67 Year
  Sex: Female

DRUGS (17)
  1. ZOVIRAX [Suspect]
     Indication: HERPES ZOSTER
     Dosage: 3.2G PER DAY
     Route: 048
     Dates: start: 19980116, end: 19980201
  2. LACTULOSE [Concomitant]
     Route: 048
  3. METOPROLOL TARTRATE [Concomitant]
  4. CISAPRIDE [Concomitant]
  5. HYDROXYZINE HCL [Concomitant]
     Route: 048
  6. NITROGLYCERIN [Concomitant]
  7. ACETAMINOPHEN [Concomitant]
  8. AMITRIPTYLINE HCL [Concomitant]
  9. BEHEPAN [Concomitant]
  10. ORALOVITE [Concomitant]
  11. DEXTROPROPOXYPHENE NAPSYLATE [Concomitant]
  12. THYROXINE SODIUM [Concomitant]
  13. FRUSEMIDE [Concomitant]
  14. KETOBEMIDONE [Concomitant]
  15. CALCIUM CARBONATE [Concomitant]
  16. OMEPRAZOLE [Concomitant]
  17. UNKNOWN DRUG [Concomitant]

REACTIONS (8)
  - COORDINATION ABNORMAL [None]
  - DISSOCIATION [None]
  - FATIGUE [None]
  - FEELING ABNORMAL [None]
  - INCOHERENT [None]
  - RESTLESSNESS [None]
  - SOMNOLENCE [None]
  - SPEECH DISORDER [None]
